FAERS Safety Report 18541336 (Version 1)
Quarter: 2020Q4

REPORT INFORMATION
  Report Type: Spontaneous
  Country: US (occurrence: US)
  Receive Date: 20201124
  Receipt Date: 20201124
  Transmission Date: 20210114
  Serious: No
  Sender: FDA-Public Use
  Company Number: US-AIMMUNE THERAPEUTICS, INC.-2020AIMT00247

PATIENT

DRUGS (2)
  1. PALFORZIA [Suspect]
     Active Substance: PEANUT
     Indication: FOOD ALLERGY
     Dosage: IDE 0.5 TO 3 MG
     Route: 048
  2. PALFORZIA [Suspect]
     Active Substance: PEANUT
     Dosage: UPDOSE 3MG
     Route: 048
     Dates: start: 2020

REACTIONS (1)
  - Product dose omission issue [Unknown]
